FAERS Safety Report 8272542-2 (Version None)
Quarter: 2012Q2

REPORT INFORMATION
  Report Type: 
  Country: None (occurrence: None)
  Receive Date: 20120410
  Receipt Date: 20120329
  Transmission Date: 20120825
  Serious: Yes (Other)
  Sender: FDA-Public Use
  Company Number: GB-BAUSCH-2012BL002321

PATIENT
  Age: 67 Year
  Sex: Female

DRUGS (1)
  1. LATANOPROST [Suspect]
     Indication: PRODUCT USED FOR UNKNOWN INDICATION
     Route: 047
     Dates: start: 20050412, end: 20120103

REACTIONS (4)
  - FEELING ABNORMAL [None]
  - EYE IRRITATION [None]
  - VERTIGO [None]
  - BALANCE DISORDER [None]
